FAERS Safety Report 18256833 (Version 2)
Quarter: 2020Q4

REPORT INFORMATION
  Report Type: Spontaneous
  Country: IT (occurrence: IT)
  Receive Date: 20200911
  Receipt Date: 20201111
  Transmission Date: 20210113
  Serious: Yes (Hospitalization)
  Sender: FDA-Public Use
  Company Number: IT-ACCORD-200334

PATIENT
  Age: 29 Year
  Sex: Female

DRUGS (5)
  1. LORAZEPAM LEDERLE [Suspect]
     Active Substance: LORAZEPAM
     Route: 048
     Dates: start: 20180220, end: 20180220
  2. LITHIUM. [Concomitant]
     Active Substance: LITHIUM
     Indication: NARCISSISTIC PERSONALITY DISORDER
     Dosage: STRENGTH: 300 MG HARD CAPSULES
     Route: 048
  3. QUETIAPINE. [Suspect]
     Active Substance: QUETIAPINE
     Route: 048
     Dates: start: 20180220, end: 20180220
  4. FELISON [Suspect]
     Active Substance: FLURAZEPAM MONOHYDROCHLORIDE
     Dosage: STRENGTH: 30 MG HARD CAPSULES
     Route: 048
     Dates: start: 20180220, end: 20180220
  5. TRILAFON [Suspect]
     Active Substance: PERPHENAZINE
     Dosage: STRENGTH: 4 MG COATED TABLETS
     Route: 048
     Dates: start: 20180220, end: 20180220

REACTIONS (3)
  - Sopor [Recovering/Resolving]
  - Bradykinesia [Recovering/Resolving]
  - Drug abuse [Unknown]

NARRATIVE: CASE EVENT DATE: 20180220
